FAERS Safety Report 23456096 (Version 2)
Quarter: 2024Q3

REPORT INFORMATION
  Report Type: Spontaneous
  Country: JP (occurrence: JP)
  Receive Date: 20240130
  Receipt Date: 20240930
  Transmission Date: 20241016
  Serious: Yes (Death, Other)
  Sender: ROCHE
  Company Number: JP-CHUGAI-2024001631

PATIENT
  Age: 90 Year
  Sex: Female
  Weight: 48.3 kg

DRUGS (4)
  1. GAZYVA [Suspect]
     Active Substance: OBINUTUZUMAB
     Indication: Follicular lymphoma recurrent
     Route: 065
     Dates: start: 20230710, end: 20231211
  2. CYCLOPHOSPHAMIDE [Concomitant]
     Active Substance: CYCLOPHOSPHAMIDE
     Dosage: UNK
  3. VINCRISTINE SULFATE [Concomitant]
     Active Substance: VINCRISTINE SULFATE
     Dosage: UNK
  4. PREDNISOLONE [Concomitant]
     Active Substance: PREDNISOLONE
     Dosage: UNK

REACTIONS (4)
  - Interstitial lung disease [Fatal]
  - COVID-19 [Recovered/Resolved]
  - Acute respiratory failure [Unknown]
  - Organising pneumonia [Unknown]

NARRATIVE: CASE EVENT DATE: 20230827
